FAERS Safety Report 4896984-8 (Version None)
Quarter: 2006Q1

REPORT INFORMATION
  Report Type: 
  Country: None (occurrence: None)
  Receive Date: 20060127
  Receipt Date: 20060106
  Transmission Date: 20060701
  Serious: Yes (Hospitalization)
  Sender: FDA-Public Use
  Company Number: FR200512000061

PATIENT
  Sex: Female
  Weight: 70 kg

DRUGS (5)
  1. EVISTA [Suspect]
     Indication: MENOPAUSE
     Dosage: 60 MG/DAILY (1/D), ORAL
     Route: 048
     Dates: start: 20050728, end: 20051129
  2. AMLODIPINE BESYLATE [Concomitant]
  3. VALSARTAN [Concomitant]
  4. CALTRATE + D (CALCIUM CARBONATE, COLECALCIFEROL) [Concomitant]
  5. CELECTOL [Concomitant]

REACTIONS (2)
  - BREAST ABSCESS [None]
  - PRURITUS [None]
